FAERS Safety Report 24097402 (Version 3)
Quarter: 2024Q3

REPORT INFORMATION
  Report Type: Spontaneous
  Country: IT (occurrence: IT)
  Receive Date: 20240716
  Receipt Date: 20240904
  Transmission Date: 20241017
  Serious: Yes (Hospitalization, Congenital Anomaly, Other)
  Sender: MERCK
  Company Number: US-009507513-2407USA005217

PATIENT
  Sex: Female
  Weight: 1.685 kg

DRUGS (1)
  1. KEYTRUDA [Suspect]
     Active Substance: PEMBROLIZUMAB
     Dosage: 200 MILLIGRAM, EVERY 21 DAYS (Q3W)
     Route: 064
     Dates: start: 20230102

REACTIONS (16)
  - Congenital pancreatic anomaly [Unknown]
  - Necrotising colitis [Recovering/Resolving]
  - Foetal growth restriction [Unknown]
  - Anaemia [Recovering/Resolving]
  - Intestinal perforation [Recovering/Resolving]
  - Brain injury [Unknown]
  - Cerebral ischaemia [Unknown]
  - Cerebral haemorrhage [Unknown]
  - Intestinal dilatation [Unknown]
  - Metabolic acidosis [Recovering/Resolving]
  - Blood glucose fluctuation [Recovering/Resolving]
  - Hypoalbuminaemia [Recovering/Resolving]
  - Klebsiella infection [Recovering/Resolving]
  - Staphylococcal infection [Recovering/Resolving]
  - Blood glucose increased [Not Recovered/Not Resolved]
  - Foetal exposure during pregnancy [Recovered/Resolved]

NARRATIVE: CASE EVENT DATE: 20231221
